FAERS Safety Report 6289456-X (Version None)
Quarter: 2009Q3

REPORT INFORMATION
  Report Type: 
  Country: None (occurrence: None)
  Receive Date: 20090728
  Receipt Date: 20090728
  Transmission Date: 20100115
  Serious: Yes (Death)
  Sender: FDA-Public Use
  Company Number: None

PATIENT
  Age: 74 Year
  Sex: Female
  Weight: 134.7183 kg

DRUGS (2)
  1. DAPTOMYCIN [Suspect]
     Indication: CELLULITIS
     Dosage: PO
     Route: 048
  2. SIMVASTATIN [Suspect]
     Indication: HYPERLIPIDAEMIA
     Dosage: 40MGS DAILY PO
     Route: 048

REACTIONS (2)
  - CELLULITIS [None]
  - RHABDOMYOLYSIS [None]
